FAERS Safety Report 25177419 (Version 1)
Quarter: 2025Q2

REPORT INFORMATION
  Report Type: Spontaneous
  Country: US (occurrence: US)
  Receive Date: 20250409
  Receipt Date: 20250409
  Transmission Date: 20250716
  Serious: Yes (Hospitalization, Other)
  Sender: ALEMBIC
  Company Number: US-ALEMBIC PHARMACUETICALS LIMITED-2025SCAL000300

PATIENT

DRUGS (3)
  1. METHOTREXATE [Suspect]
     Active Substance: METHOTREXATE
     Indication: Granulomatosis with polyangiitis
     Route: 065
  2. RITUXIMAB [Concomitant]
     Active Substance: RITUXIMAB
     Indication: Granulomatosis with polyangiitis
     Route: 065
  3. PREDNISONE [Concomitant]
     Active Substance: PREDNISONE
     Indication: Granulomatosis with polyangiitis
     Route: 065

REACTIONS (11)
  - Toxicity to various agents [Unknown]
  - Hyperammonaemia [Recovered/Resolved]
  - Drug level increased [Unknown]
  - Pyelonephritis [Unknown]
  - Ureteritis [Unknown]
  - Ureaplasma infection [Unknown]
  - Pyelonephritis mycoplasmal [Unknown]
  - Mental status changes [Recovered/Resolved]
  - Acute respiratory failure [Unknown]
  - Encephalopathy [Unknown]
  - Immunosuppression [Unknown]
